FAERS Safety Report 5675904-2 (Version None)
Quarter: 2008Q2

REPORT INFORMATION
  Report Type: 
  Country: None (occurrence: None)
  Receive Date: 20080228
  Receipt Date: 20071122
  Transmission Date: 20081010
  Serious: Yes (Hospitalization, Other)
  Sender: FDA-Public Use
  Company Number: 2007BH008025

PATIENT
  Age: 48 Year
  Sex: Female
  Weight: 73.6 kg

DRUGS (5)
  1. GAMMAGARD LIQUID [Suspect]
     Indication: CHRONIC INFLAMMATORY DEMYELINATING POLYRADICULONEUROPATHY
     Dosage: 50 GM;X1;IV
     Route: 042
     Dates: start: 20070507, end: 20070507
  2. GAMMAGARD LIQUID [Suspect]
  3. GAMMAGARD LIQUID [Suspect]
  4. ASPIRIN [Concomitant]
  5. BENADRYL [Concomitant]

REACTIONS (1)
  - MENINGITIS ASEPTIC [None]
